FAERS Safety Report 6764352-X (Version None)
Quarter: 2010Q2

REPORT INFORMATION
  Report Type: 
  Country: None (occurrence: None)
  Receive Date: 20100610
  Receipt Date: 20100601
  Transmission Date: 20101027
  Serious: Yes (Other)
  Sender: FDA-Public Use
  Company Number: IE-PFIZER INC-2010046344

PATIENT
  Sex: Male

DRUGS (2)
  1. INSPRA [Suspect]
     Indication: PRIMARY HYPERALDOSTERONISM
     Dosage: 50 MG, UNK
  2. INSPRA [Suspect]
     Indication: HYPERALDOSTERONISM
     Dosage: 25 MG, UNK

REACTIONS (1)
  - BLOOD PRESSURE INADEQUATELY CONTROLLED [None]
